FAERS Safety Report 16092902 (Version 1)
Quarter: 2019Q1

REPORT INFORMATION
  Report Type: Spontaneous
  Country: US (occurrence: US)
  Receive Date: 20190320
  Receipt Date: 20190320
  Transmission Date: 20190418
  Serious: No
  Sender: FDA-Public Use
  Company Number: US-TEVA-2019-US-1018075

PATIENT
  Sex: Female

DRUGS (1)
  1. Z PACK TEVA (AZITHROMYCIN) [Suspect]
     Active Substance: AZITHROMYCIN
     Dates: start: 20171208

REACTIONS (3)
  - Condition aggravated [None]
  - Cough [Unknown]
  - Nasopharyngitis [None]
